FAERS Safety Report 6429177-3 (Version None)
Quarter: 2009Q4

REPORT INFORMATION
  Report Type: 
  Country: None (occurrence: None)
  Receive Date: 20091105
  Receipt Date: 20091029
  Transmission Date: 20100525
  Serious: Yes (Hospitalization, Other)
  Sender: FDA-Public Use
  Company Number: US-BAYER-200916144BCC

PATIENT
  Age: 82 Year
  Sex: Female
  Weight: 58 kg

DRUGS (13)
  1. ASPIRIN [Suspect]
     Indication: STENT PLACEMENT
     Route: 065
     Dates: start: 20070615, end: 20080913
  2. EXEMESTANE [Suspect]
     Indication: BREAST CANCER
     Dosage: TOTAL DAILY DOSE: 25 MG  UNIT DOSE: 25 MG
     Route: 048
     Dates: start: 20090425
  3. COUMADIN [Suspect]
     Indication: DEEP VEIN THROMBOSIS
     Route: 065
     Dates: start: 20030101
  4. PLAVIX [Suspect]
     Indication: STENT PLACEMENT
     Route: 065
     Dates: start: 20070615
  5. LIPITOR [Concomitant]
     Route: 065
     Dates: start: 19950101
  6. LEVOXYL [Concomitant]
     Route: 065
     Dates: start: 19950101
  7. HYDROCHLOROTHIAZIDE [Concomitant]
     Route: 065
     Dates: start: 19950101
  8. CALCIUM WITH VITAMIN D [Concomitant]
     Route: 065
     Dates: start: 20000101
  9. EFFEXOR [Concomitant]
     Route: 065
     Dates: start: 20080120
  10. TOPROL-XL [Concomitant]
     Route: 065
     Dates: start: 20080421
  11. POTASSIUM CHLORIDE [Concomitant]
     Route: 065
     Dates: start: 20080425
  12. CELEBREX [Concomitant]
     Route: 065
     Dates: start: 20080414
  13. MOBIC [Concomitant]
     Route: 048
     Dates: start: 20080715, end: 20080913

REACTIONS (6)
  - ASTHENIA [None]
  - GAIT DISTURBANCE [None]
  - GASTRIC ULCER [None]
  - GASTRITIS [None]
  - GASTROINTESTINAL HAEMORRHAGE [None]
  - MELAENA [None]
